FAERS Safety Report 11318686 (Version 1)
Quarter: 2015Q3

REPORT INFORMATION
  Report Type: Spontaneous
  Country: US (occurrence: US)
  Receive Date: 20150729
  Receipt Date: 20150729
  Transmission Date: 20151125
  Serious: No
  Sender: FDA-Public Use
  Company Number: US-009507513-1507USA010591

PATIENT
  Age: 30 Year
  Sex: Female

DRUGS (3)
  1. BELSOMRA [Suspect]
     Active Substance: SUVOREXANT
     Dosage: THE EXACT DOSAGE AND FREQUENCY UNSPECIFIED
     Route: 048
  2. BELSOMRA [Suspect]
     Active Substance: SUVOREXANT
     Indication: INSOMNIA
     Dosage: TWO 10 MG TABLETS TOGETHER AT ONCE
     Route: 048
  3. BELSOMRA [Suspect]
     Active Substance: SUVOREXANT
     Indication: INSOMNIA
     Dosage: THE EXACT DOSAGE AND FREQUENCY UNSPECIFIED
     Route: 048

REACTIONS (1)
  - Somnambulism [Unknown]
